FAERS Safety Report 9902297 (Version 2)
Quarter: 2014Q1

REPORT INFORMATION
  Report Type: Spontaneous
  Country: JP (occurrence: JP)
  Receive Date: 20140217
  Receipt Date: 20140224
  Transmission Date: 20141002
  Serious: Yes (Other)
  Sender: FDA-Public Use
  Company Number: JP-PFIZER INC-2014040081

PATIENT
  Age: 8 Decade
  Sex: Female

DRUGS (2)
  1. ZYVOX [Suspect]
  2. VANCOMYCIN [Suspect]

REACTIONS (1)
  - Renal failure [Unknown]
